FAERS Safety Report 18107887 (Version 3)
Quarter: 2020Q3

REPORT INFORMATION
  Report Type: Report from Study
  Country: SE (occurrence: SE)
  Receive Date: 20200804
  Receipt Date: 20200925
  Transmission Date: 20201103
  Serious: Yes (Death, Other)
  Sender: FDA-Public Use
  Company Number: SE-SA-2020SA200278

PATIENT

DRUGS (10)
  1. ISONIAZID. [Interacting]
     Active Substance: ISONIAZID
     Indication: MENINGOENCEPHALITIS BACTERIAL
     Dosage: UNK
  2. ISOFLURANE. [Interacting]
     Active Substance: ISOFLURANE
     Indication: ANAESTHESIA
     Dosage: UNK
  3. RIFAMPICIN [Suspect]
     Active Substance: RIFAMPIN
     Indication: MENINGOENCEPHALITIS BACTERIAL
     Dosage: UNK
  4. PYRAZINAMIDE. [Interacting]
     Active Substance: PYRAZINAMIDE
     Indication: MENINGOENCEPHALITIS BACTERIAL
     Dosage: UNK
  5. ISOFLURANE. [Interacting]
     Active Substance: ISOFLURANE
     Indication: EXERESIS
  6. PYRAZINAMIDE. [Interacting]
     Active Substance: PYRAZINAMIDE
     Indication: TUBERCULOSIS
  7. ISONIAZID. [Interacting]
     Active Substance: ISONIAZID
     Indication: TUBERCULOSIS
  8. STREPTOMYCIN [Interacting]
     Active Substance: STREPTOMYCIN SULFATE
     Indication: MENINGOENCEPHALITIS BACTERIAL
     Dosage: UNK
  9. RIFAMPICIN [Suspect]
     Active Substance: RIFAMPIN
     Indication: TUBERCULOSIS
  10. STREPTOMYCIN [Interacting]
     Active Substance: STREPTOMYCIN SULFATE
     Indication: TUBERCULOSIS

REACTIONS (6)
  - Hepatic failure [Fatal]
  - Hepatitis fulminant [Fatal]
  - Drug-induced liver injury [Fatal]
  - Exposure during pregnancy [Unknown]
  - Drug interaction [Fatal]
  - Jaundice [Fatal]
